FAERS Safety Report 5631383-2 (Version None)
Quarter: 2008Q1

REPORT INFORMATION
  Report Type: 
  Country: None (occurrence: None)
  Receive Date: 20080219
  Receipt Date: 20080212
  Transmission Date: 20080703
  Serious: Yes (Hospitalization)
  Sender: FDA-Public Use
  Company Number: CA-GENENTECH-254331

PATIENT
  Sex: Male
  Weight: 81.633 kg

DRUGS (4)
  1. OMALIZUMAB [Suspect]
     Indication: ASTHMA
     Dosage: 150 MG, Q4W
     Route: 058
     Dates: start: 20071102
  2. VENTOLIN [Concomitant]
     Indication: BRONCHOSPASM
  3. SEREVENT [Concomitant]
     Indication: BRONCHOSPASM
     Dosage: UNK, BID
  4. PREDNISONE TAB [Concomitant]
     Indication: BRONCHOSPASM

REACTIONS (2)
  - BRONCHOSPASM [None]
  - DIZZINESS [None]
